FAERS Safety Report 4880496-1 (Version None)
Quarter: 2006Q1

REPORT INFORMATION
  Report Type: 
  Country: None (occurrence: None)
  Receive Date: 20060113
  Receipt Date: 20060106
  Transmission Date: 20060701
  Serious: Yes (Other)
  Sender: FDA-Public Use
  Company Number: GB-MERCK-0601GBR00034

PATIENT
  Sex: Male
  Weight: 72 kg

DRUGS (2)
  1. TRUSOPT [Suspect]
     Indication: GLAUCOMA
     Route: 047
     Dates: start: 20050617
  2. LATANOPROST [Concomitant]
     Indication: GLAUCOMA
     Route: 047
     Dates: start: 20050601

REACTIONS (1)
  - DEPRESSION [None]
